FAERS Safety Report 8112123-4 (Version None)
Quarter: 2012Q1

REPORT INFORMATION
  Report Type: 
  Country: None (occurrence: None)
  Receive Date: 20120203
  Receipt Date: 20120127
  Transmission Date: 20120608
  Serious: Yes (Hospitalization)
  Sender: FDA-Public Use
  Company Number: FR-PFIZER INC-K200901505

PATIENT
  Age: 82 Year
  Sex: Female
  Weight: 68 kg

DRUGS (11)
  1. MOXONIDINE [Suspect]
     Indication: HYPERTENSION
     Dosage: 0.3 MG, 2X/DAY
     Route: 048
     Dates: start: 20080601
  2. ALLOPURINOL [Concomitant]
     Dosage: UNK
     Dates: start: 20080601, end: 20090712
  3. DIPYRONE TAB [Concomitant]
     Indication: PAIN
     Dosage: UNK
  4. BISOPROLOL FUMARATE [Suspect]
     Indication: HYPERTENSION
     Dosage: 5 MG, 2X/DAY
     Route: 048
     Dates: start: 20080601
  5. XIPAMIDE [Suspect]
     Indication: HYPERTENSION
     Dosage: 20 MG, 1X/DAY
     Route: 048
     Dates: start: 20080601
  6. ACETYLSALICYLIC ACID SRT [Suspect]
     Indication: CEREBROVASCULAR ACCIDENT
     Dosage: 100 MG, 1X/DAY
     Route: 048
  7. PANTOPRAZOLE [Concomitant]
     Indication: PROPHYLAXIS AGAINST GASTROINTESTINAL ULCER
     Dosage: UNK
  8. METFORMIN [Concomitant]
     Indication: TYPE 2 DIABETES MELLITUS
     Dosage: UNK
     Dates: start: 20080601, end: 20090712
  9. TORSEMIDE [Suspect]
     Indication: HYPERTENSION
     Dosage: 10 MG, 1X/DAY
     Route: 048
     Dates: start: 20080601, end: 20090712
  10. ALTACE [Suspect]
     Indication: HYPERTENSION
     Dosage: 5 MG, 1X/DAY
     Route: 048
  11. TILIDINE HYDROCHLORIDE [Suspect]
     Indication: PAIN
     Dosage: 1 DF, UNK
     Route: 048
     Dates: start: 20090701

REACTIONS (11)
  - HYPOKALAEMIA [None]
  - BLOOD UREA INCREASED [None]
  - DEHYDRATION [None]
  - ACUTE PRERENAL FAILURE [None]
  - ALKALOSIS [None]
  - BLOOD CREATININE INCREASED [None]
  - HYPONATRAEMIA [None]
  - NAUSEA [None]
  - CONSTIPATION [None]
  - DRY SKIN [None]
  - VOMITING [None]
